FAERS Safety Report 5325066-6 (Version None)
Quarter: 2007Q2

REPORT INFORMATION
  Report Type: 
  Country: None (occurrence: None)
  Receive Date: 20070511
  Receipt Date: 20070511
  Transmission Date: 20071010
  Serious: Yes (Life-Threatening, Other)
  Sender: FDA-Public Use
  Company Number: None

PATIENT
  Age: 62 Year
  Sex: Female
  Weight: 54.4316 kg

DRUGS (1)
  1. LOVASTATIN [Suspect]
     Indication: BLOOD CHOLESTEROL INCREASED
     Dosage: 20MG ONCE IN P.M. PO
     Route: 048
     Dates: start: 20070405, end: 20070503

REACTIONS (9)
  - BACK PAIN [None]
  - CHROMATURIA [None]
  - DEPRESSION [None]
  - FATIGUE [None]
  - FEELING ABNORMAL [None]
  - IRRITABILITY [None]
  - KIDNEY INFECTION [None]
  - SUICIDAL IDEATION [None]
  - URINE ODOUR ABNORMAL [None]
